FAERS Safety Report 5716405-2 (Version None)
Quarter: 2008Q2

REPORT INFORMATION
  Report Type: 
  Country: None (occurrence: None)
  Receive Date: 20080424
  Receipt Date: 20080417
  Transmission Date: 20081010
  Serious: Yes (Life-Threatening, Disabling)
  Sender: FDA-Public Use
  Company Number: GB-WYE-G01418908

PATIENT
  Age: 44 Year
  Sex: Female
  Weight: 52 kg

DRUGS (3)
  1. EFFEXOR [Suspect]
     Indication: DEPRESSION
     Dosage: 75MG, FREQUENCY UNKNOWN
     Route: 048
     Dates: start: 20070517, end: 20080101
  2. EFFEXOR [Suspect]
     Dosage: 37.5MG, FREQUENCY UNKNOWN
     Route: 048
     Dates: start: 20080101, end: 20080226
  3. DEPIXOL [Concomitant]
     Dosage: 50MG, FREQUENCY UNKNOWN
     Route: 030
     Dates: start: 20060101

REACTIONS (1)
  - TRANSIENT ISCHAEMIC ATTACK [None]
